FAERS Safety Report 4835680-X (Version None)
Quarter: 2005Q4

REPORT INFORMATION
  Report Type: 
  Country: None (occurrence: None)
  Receive Date: 20051121
  Receipt Date: 20051107
  Transmission Date: 20060501
  Serious: Yes (Other)
  Sender: FDA-Public Use
  Company Number: 2005152320

PATIENT
  Age: 83 Year
  Sex: Female
  Weight: 47.6277 kg

DRUGS (5)
  1. BENGAY PAIN RELIEVING PATCH (MENTHOL) [Suspect]
     Indication: ARTHRALGIA
     Dosage: 1 PATCH ONCE, TOPICAL
     Route: 061
     Dates: start: 20051028, end: 20051029
  2. LOTREL [Concomitant]
  3. ALENDRONATE SODIUM [Concomitant]
  4. ATORVASTATIN CALCIUM [Concomitant]
  5. ASPIRIN [Concomitant]

REACTIONS (1)
  - BURNS SECOND DEGREE [None]
